FAERS Safety Report 24166160 (Version 1)
Quarter: 2024Q3

REPORT INFORMATION
  Report Type: Report from Study
  Country: US (occurrence: US)
  Receive Date: 20240802
  Receipt Date: 20240802
  Transmission Date: 20241017
  Serious: Yes (Hospitalization, Other)
  Sender: ROCHE
  Company Number: US-ROCHE-3160992

PATIENT
  Age: 59 Year
  Sex: Female
  Weight: 54.43 kg

DRUGS (10)
  1. RITUXAN [Suspect]
     Active Substance: RITUXIMAB
     Indication: Rheumatoid arthritis
     Dosage: NO
     Route: 042
     Dates: start: 202009, end: 202104
  2. RITUXAN [Suspect]
     Active Substance: RITUXIMAB
     Route: 042
     Dates: start: 2021
  3. ACTEMRA [Suspect]
     Active Substance: TOCILIZUMAB
     Indication: Rheumatoid arthritis
     Dosage: YES?520 MG EVERY 28 DAYS
     Route: 042
     Dates: start: 201906
  4. ACTEMRA [Suspect]
     Active Substance: TOCILIZUMAB
     Route: 042
  5. ACTEMRA [Suspect]
     Active Substance: TOCILIZUMAB
     Dosage: DATE OF SERVICE: 30/OCT/2020
     Route: 042
  6. ACTEMRA [Suspect]
     Active Substance: TOCILIZUMAB
     Dosage: 400 UNIT NOT REPORTED
     Route: 042
     Dates: start: 202403
  7. ACTEMRA [Suspect]
     Active Substance: TOCILIZUMAB
     Dosage: 400 UNIT NOT REPORTED
     Route: 042
     Dates: start: 2018
  8. METHOTREXATE [Concomitant]
     Active Substance: METHOTREXATE
     Route: 048
  9. PROTONIX [Concomitant]
     Active Substance: PANTOPRAZOLE SODIUM
  10. ACYCLOVIR [Concomitant]
     Active Substance: ACYCLOVIR

REACTIONS (8)
  - Drug ineffective [Unknown]
  - White blood cell count decreased [Unknown]
  - Abscess limb [Unknown]
  - Pneumothorax [Unknown]
  - Pneumonia fungal [Unknown]
  - Fall [Recovered/Resolved]
  - Rash [Unknown]
  - Cough [Unknown]

NARRATIVE: CASE EVENT DATE: 20200901
